FAERS Safety Report 7985710-1 (Version None)
Quarter: 2011Q4

REPORT INFORMATION
  Report Type: 
  Country: None (occurrence: None)
  Receive Date: 20111216
  Receipt Date: 20111216
  Transmission Date: 20120403
  Serious: Yes (Other)
  Sender: FDA-Public Use
  Company Number: None

PATIENT
  Age: 9 Year
  Sex: Female
  Weight: 25.401 kg

DRUGS (1)
  1. LUPRON DEPOT-PED [Suspect]
     Indication: PUBERTY
     Dosage: 11.25 MG INJECTION
     Route: 030
     Dates: start: 20110826, end: 20110826

REACTIONS (3)
  - GAIT DISTURBANCE [None]
  - MUSCLE INJURY [None]
  - CHEMICAL INJURY [None]
